FAERS Safety Report 9382328 (Version 4)
Quarter: 2013Q4

REPORT INFORMATION
  Report Type: Spontaneous
  Country: FR (occurrence: FR)
  Receive Date: 20130703
  Receipt Date: 20131127
  Transmission Date: 20140711
  Serious: Yes (Hospitalization, Other)
  Sender: FDA-Public Use
  Company Number: FR-PFIZER INC-2013192215

PATIENT
  Age: 41 Year
  Sex: Female

DRUGS (8)
  1. ARACYTINE [Suspect]
     Indication: ACUTE MYELOID LEUKAEMIA
     Dosage: 500 MG/M2, CYCLIC (DAY 1 TO DAY 3)
     Route: 042
     Dates: start: 20130306
  2. ARACYTINE [Suspect]
     Dosage: 3 G/M2 TWICE DAILY, CYCLIC (ADMINISTERED ON DAY 1, DAY 3, AND DAY 5)
     Dates: start: 20130509, end: 20130513
  3. ARACYTINE [Suspect]
     Dosage: 1000 MG/M2, 2X/DAY (DAY 8 TO DAY 10)
  4. DAUNORUBICIN [Concomitant]
     Dosage: 60 MG/M2, DAILY DAY 1 TO DAY 3
  5. DAUNORUBICIN [Concomitant]
     Dosage: 35 MG/M2, CYCLIC (DAY 8 AND DAY 9)
  6. VALDOXAN [Concomitant]
     Dosage: 2 DF, 1X/DAY
  7. NUCTALON [Concomitant]
     Dosage: 1 DF, 1X/DAY
  8. LUTENYL [Concomitant]
     Dosage: 2 DF, 1X/DAY

REACTIONS (2)
  - Lung infiltration [Recovering/Resolving]
  - Bone marrow failure [Recovered/Resolved]
